FAERS Safety Report 5689724-6 (Version None)
Quarter: 2008Q1

REPORT INFORMATION
  Report Type: 
  Country: None (occurrence: None)
  Receive Date: 20080328
  Receipt Date: 20080314
  Transmission Date: 20080703
  Serious: Yes (Other)
  Sender: FDA-Public Use
  Company Number: 08-000470

PATIENT
  Age: 16 Year
  Sex: Male

DRUGS (2)
  1. DURICEF [Suspect]
     Indication: UPPER RESPIRATORY TRACT INFLAMMATION
     Dosage: 1000MG, BID, ORAL
     Route: 048
     Dates: start: 20080131, end: 20080202
  2. MULTIVITAMIN /00831701/ (VITAMINS NOS) [Concomitant]

REACTIONS (1)
  - DYSPNOEA [None]
